FAERS Safety Report 11055905 (Version 3)
Quarter: 2015Q4

REPORT INFORMATION
  Report Type: Spontaneous
  Country: US (occurrence: US)
  Receive Date: 20150422
  Receipt Date: 20151006
  Transmission Date: 20160304
  Serious: Yes (Other)
  Sender: FDA-Public Use
  Company Number: US-AMGEN-USASP2015037360

PATIENT
  Age: 74 Year
  Sex: Female

DRUGS (1)
  1. PROLIA [Suspect]
     Active Substance: DENOSUMAB
     Indication: OSTEOPOROSIS POSTMENOPAUSAL
     Dosage: 60 MG, Q6MO
     Route: 058
     Dates: start: 20120104, end: 20120711

REACTIONS (6)
  - Osteonecrosis of jaw [Unknown]
  - Ear pain [Not Recovered/Not Resolved]
  - Toothache [Not Recovered/Not Resolved]
  - Loose tooth [Unknown]
  - Pain in jaw [Not Recovered/Not Resolved]
  - Tooth loss [Unknown]
